FAERS Safety Report 5468384-3 (Version None)
Quarter: 2007Q3

REPORT INFORMATION
  Report Type: 
  Country: None (occurrence: None)
  Receive Date: 20070924
  Receipt Date: 20070913
  Transmission Date: 20080115
  Serious: Yes (Hospitalization)
  Sender: FDA-Public Use
  Company Number: E2020-01589-SPO-DE

PATIENT
  Age: 77 Year
  Sex: Male
  Weight: 84 kg

DRUGS (8)
  1. ARICEPT [Suspect]
     Indication: DEMENTIA
     Dosage: 5 MG, 1 IN 1 D, ORAL
     Route: 048
     Dates: start: 20070829, end: 20070831
  2. FALITHROM (PHENPROCOUMON) [Concomitant]
  3. AMIODARONE HCL [Concomitant]
  4. CARVEDILOLE (CARVEDILOL) [Concomitant]
  5. DIGITOXIN INJ [Concomitant]
  6. GLYBURIDE [Concomitant]
  7. VITAMIN B (VITAMIN B) [Concomitant]
  8. NORSPAN (BUPRENORPHINE) [Concomitant]

REACTIONS (3)
  - CARDIAC DISORDER [None]
  - EPISTAXIS [None]
  - INTERNATIONAL NORMALISED RATIO INCREASED [None]
